FAERS Safety Report 5477665-9 (Version None)
Quarter: 2007Q4

REPORT INFORMATION
  Report Type: 
  Country: None (occurrence: None)
  Receive Date: 20071003
  Receipt Date: 20071003
  Transmission Date: 20080405
  Serious: Yes (Other)
  Sender: FDA-Public Use
  Company Number: None

PATIENT
  Age: 48 Year
  Sex: Female
  Weight: 83.9154 kg

DRUGS (1)
  1. PREDNISONE TAB [Suspect]
     Indication: COMPLEX REGIONAL PAIN SYNDROME
     Dosage: 4 PER DAY, THEN 3, 2 THEN 1

REACTIONS (9)
  - ANOREXIA [None]
  - DRUG ERUPTION [None]
  - DYSGEUSIA [None]
  - ILL-DEFINED DISORDER [None]
  - INSOMNIA [None]
  - PAIN [None]
  - PARAESTHESIA [None]
  - PARAESTHESIA ORAL [None]
  - PRURITUS [None]
